FAERS Safety Report 8362677-8 (Version None)
Quarter: 2012Q2

REPORT INFORMATION
  Report Type: 
  Country: None (occurrence: None)
  Receive Date: 20120516
  Receipt Date: 20120504
  Transmission Date: 20120825
  Serious: Yes (Hospitalization)
  Sender: FDA-Public Use
  Company Number: US-SANOFI-AVENTIS-2012SA031930

PATIENT
  Age: 59 Year
  Sex: Female

DRUGS (2)
  1. APIDRA [Suspect]
     Dosage: DOSE:17 UNIT(S)
     Route: 058
  2. PREDNISONE [Concomitant]

REACTIONS (3)
  - TREMOR [None]
  - HOSPITALISATION [None]
  - BLOOD GLUCOSE INCREASED [None]
